FAERS Safety Report 9558917 (Version 2)
Quarter: 2013Q3

REPORT INFORMATION
  Report Type: Spontaneous
  Country: DE (occurrence: DE)
  Receive Date: 20130927
  Receipt Date: 20130927
  Transmission Date: 20140515
  Serious: Yes (Hospitalization)
  Sender: FDA-Public Use
  Company Number: DE-AMGEN-DEUSP2013063814

PATIENT
  Age: 57 Year
  Sex: Female
  Weight: 83 kg

DRUGS (7)
  1. NEULASTA [Suspect]
     Indication: PRODUCT USED FOR UNKNOWN INDICATION
     Dosage: 6 MG, ^2X^
     Route: 058
     Dates: start: 20130904
  2. CYCLOPHOSPHAMIDE [Suspect]
     Indication: BREAST CANCER
     Dosage: 3800 UNK, ^1^
     Route: 042
     Dates: start: 20130820
  3. EPIRUBICIN [Concomitant]
     Indication: BREAST CANCER
     Dosage: UNK
  4. PACLITAXEL [Concomitant]
     Indication: BREAST CANCER
     Dosage: UNK
  5. EMEND                              /01627301/ [Concomitant]
     Dosage: 125MG / 80MG, ^1X^
     Route: 048
  6. DEXAMETHASONE [Concomitant]
     Dosage: 8 MG, ^1X^
     Route: 042
  7. GRANISETRON [Concomitant]
     Dosage: 1 MG, ^1X^

REACTIONS (6)
  - Neutropenia [Recovered/Resolved]
  - White blood cell count abnormal [Recovered/Resolved]
  - Red blood cell count abnormal [Recovered/Resolved]
  - Wrong drug administered [Unknown]
  - Therapeutic response delayed [Unknown]
  - Full blood count abnormal [Recovered/Resolved]
